FAERS Safety Report 21792918 (Version 1)
Quarter: 2022Q4

REPORT INFORMATION
  Report Type: Other
  Country: US (occurrence: US)
  Receive Date: 20221229
  Receipt Date: 20221229
  Transmission Date: 20230112
  Serious: No
  Sender: FDA-Public Use
  Company Number: US-APOTEX-2022AP016969

PATIENT
  Age: 25 Year
  Sex: Female

DRUGS (5)
  1. EMTRICITABINE\TENOFOVIR [Suspect]
     Active Substance: EMTRICITABINE\TENOFOVIR
     Indication: Antiretroviral therapy
     Dosage: UNK, QD (DOSE 1 UNIT NOT PROVIDED)
     Route: 048
     Dates: start: 2021
  2. DOLUTEGRAVIR SODIUM\LAMIVUDINE [Suspect]
     Active Substance: DOLUTEGRAVIR SODIUM\LAMIVUDINE
     Indication: Antiretroviral therapy
     Dosage: UNK, QD (DOSE 1 UNIT NOT PROVIDED)
     Route: 048
     Dates: start: 2021, end: 2021
  3. DOLUTEGRAVIR [Suspect]
     Active Substance: DOLUTEGRAVIR
     Indication: Antiretroviral therapy
     Dosage: UNK, QD (DOSE 1 UNIT NOT PROVIDED)
     Route: 048
     Dates: start: 2021
  4. ZIDOVUDINE [Suspect]
     Active Substance: ZIDOVUDINE
     Indication: Antiretroviral therapy
     Dosage: UNK, QD (TOTAL DOSE 2 UNIT NOT PROVIDED)
     Route: 042
     Dates: start: 2021, end: 2021
  5. ZIDOVUDINE [Suspect]
     Active Substance: ZIDOVUDINE
     Dosage: UNK, QD (COURSE 2 TOTAL DOSE 1 UNIT NOT PROVIDED)
     Route: 042
     Dates: start: 2021, end: 2021

REACTIONS (2)
  - Maternal exposure during pregnancy [Unknown]
  - No adverse event [Unknown]

NARRATIVE: CASE EVENT DATE: 20210101
